FAERS Safety Report 21201158 (Version 1)
Quarter: 2022Q3

REPORT INFORMATION
  Report Type: Spontaneous
  Country: TR (occurrence: TR)
  Receive Date: 20220811
  Receipt Date: 20220811
  Transmission Date: 20221026
  Serious: Yes (Hospitalization)
  Sender: FDA-Public Use
  Company Number: TR-BoehringerIngelheim-2022-BI-185643

PATIENT
  Age: 83 Year
  Sex: Female

DRUGS (1)
  1. DABIGATRAN [Suspect]
     Active Substance: DABIGATRAN
     Indication: Cerebrovascular accident prophylaxis
     Route: 048

REACTIONS (1)
  - Coagulopathy [Recovering/Resolving]
